FAERS Safety Report 4921566-9 (Version None)
Quarter: 2006Q1

REPORT INFORMATION
  Report Type: 
  Country: None (occurrence: None)
  Receive Date: 20060223
  Receipt Date: 20060223
  Transmission Date: 20060701
  Serious: Yes (Life-Threatening)
  Sender: FDA-Public Use
  Company Number: None

PATIENT
  Sex: Male
  Weight: 90.7194 kg

DRUGS (1)
  1. CYPHER DES  CARDIAC STENT [Suspect]

REACTIONS (3)
  - PROCEDURAL COMPLICATION [None]
  - THROMBOSIS IN DEVICE [None]
  - VENTRICULAR FIBRILLATION [None]
